FAERS Safety Report 8083733-8 (Version None)
Quarter: 2012Q1

REPORT INFORMATION
  Report Type: 
  Country: None (occurrence: None)
  Receive Date: 20120127
  Receipt Date: 20110209
  Transmission Date: 20120608
  Serious: Yes (Hospitalization)
  Sender: FDA-Public Use
  Company Number: US-ABBOTT-11P-163-0700163-00

PATIENT
  Age: 19 Year
  Sex: Male
  Weight: 84.444 kg

DRUGS (7)
  1. PREDNISONE TAB [Concomitant]
     Indication: PRODUCT USED FOR UNKNOWN INDICATION
  2. BALSALAZIDE DISODIUM [Suspect]
     Indication: CROHN'S DISEASE
     Dates: start: 20090101
  3. APRISO [Suspect]
     Indication: CROHN'S DISEASE
  4. HUMIRA [Suspect]
     Indication: CROHN'S DISEASE
     Dates: start: 20100525
  5. FLUCONAZOLE [Concomitant]
     Indication: COCCIDIOIDOMYCOSIS
  6. MERCAPTOPURINE [Concomitant]
     Indication: PRODUCT USED FOR UNKNOWN INDICATION
  7. MESALAMINE [Suspect]
     Indication: PRODUCT USED FOR UNKNOWN INDICATION

REACTIONS (5)
  - CROHN'S DISEASE [None]
  - WEIGHT DECREASED [None]
  - DIARRHOEA [None]
  - FREQUENT BOWEL MOVEMENTS [None]
  - DRUG INEFFECTIVE [None]
